FAERS Safety Report 5841207-6 (Version None)
Quarter: 2008Q3

REPORT INFORMATION
  Report Type: 
  Country: None (occurrence: None)
  Receive Date: 20080812
  Receipt Date: 20080805
  Transmission Date: 20090109
  Serious: Yes (Other)
  Sender: FDA-Public Use
  Company Number: US-JNJFOC-20080801475

PATIENT
  Sex: Female
  Weight: 65.77 kg

DRUGS (6)
  1. LEVAQUIN [Suspect]
     Indication: INFECTION PROPHYLAXIS
     Route: 048
  2. LEVAQUIN [Suspect]
     Route: 042
  3. METRONIDAZOLE [Concomitant]
  4. HEPARIN [Concomitant]
     Indication: ANTICOAGULANT THERAPY
  5. FLAGYL [Concomitant]
     Indication: ANTIBIOTIC THERAPY
  6. UNKNOWN DRUGS [Concomitant]

REACTIONS (3)
  - BURSITIS [None]
  - ROTATOR CUFF SYNDROME [None]
  - TENDONITIS [None]
